FAERS Safety Report 6267002-4 (Version None)
Quarter: 2009Q3

REPORT INFORMATION
  Report Type: 
  Country: None (occurrence: None)
  Receive Date: 20090714
  Receipt Date: 20090701
  Transmission Date: 20100115
  Serious: Yes (Hospitalization, Other)
  Sender: FDA-Public Use
  Company Number: PHEH2009US06477

PATIENT
  Sex: Male

DRUGS (7)
  1. EXJADE [Suspect]
     Indication: IRON METABOLISM DISORDER
     Dosage: 1500 MG, QD
     Route: 048
     Dates: start: 20081208, end: 20090520
  2. RITUXAN [Concomitant]
     Indication: CHRONIC LYMPHOCYTIC LEUKAEMIA
     Dosage: 750 MG, QW
     Dates: start: 20090326, end: 20090520
  3. RITUXAN [Concomitant]
     Indication: B-CELL SMALL LYMPHOCYTIC LYMPHOMA
  4. AMIODARONE HCL [Concomitant]
     Indication: SUPRAVENTRICULAR TACHYCARDIA
     Dosage: 200 MG, QD
     Dates: start: 20090401
  5. CHLORAMBUCIL [Concomitant]
     Indication: CHRONIC LYMPHOCYTIC LEUKAEMIA
     Dosage: UNK
     Route: 048
     Dates: start: 20090225, end: 20090527
  6. CHLORAMBUCIL [Concomitant]
     Indication: B-CELL SMALL LYMPHOCYTIC LYMPHOMA
  7. NEXIUM [Concomitant]
     Indication: GASTROOESOPHAGEAL REFLUX DISEASE
     Dosage: 40 MG, QD
     Route: 048

REACTIONS (5)
  - BLOOD CREATININE INCREASED [None]
  - CHEST WALL MASS [None]
  - HAEMATOCRIT DECREASED [None]
  - HAEMOGLOBIN DECREASED [None]
  - STAPHYLOCOCCAL INFECTION [None]
